FAERS Safety Report 5761311-0 (Version None)
Quarter: 2008Q2

REPORT INFORMATION
  Report Type: 
  Country: None (occurrence: None)
  Receive Date: 20080606
  Receipt Date: 20080528
  Transmission Date: 20081010
  Serious: Yes (Other)
  Sender: FDA-Public Use
  Company Number: JP-MERCK-0805USA06120

PATIENT
  Age: 24 Month
  Sex: Female

DRUGS (6)
  1. SINGULAIR [Suspect]
     Indication: ASTHMA
     Route: 048
     Dates: start: 20080414, end: 20080520
  2. SODIUM PICOSULFATE [Concomitant]
     Indication: CONSTIPATION
     Route: 048
     Dates: start: 20080414, end: 20080520
  3. INOLIN [Concomitant]
     Indication: ASTHMA
     Route: 048
     Dates: start: 20080414, end: 20080520
  4. PERIACTIN [Concomitant]
     Indication: ASTHMA
     Route: 048
     Dates: start: 20080414, end: 20080520
  5. [THERAPY UNSPECIFIED] [Concomitant]
     Indication: ASTHMA
     Route: 048
     Dates: start: 20080414, end: 20080520
  6. HOKUNALIN [Concomitant]
     Indication: ASTHMA
     Route: 061
     Dates: start: 20080414, end: 20080520

REACTIONS (1)
  - HEPATIC FUNCTION ABNORMAL [None]
